FAERS Safety Report 9776130 (Version 1)
Quarter: 2013Q4

REPORT INFORMATION
  Report Type: Spontaneous
  Country: NL (occurrence: NL)
  Receive Date: 20131220
  Receipt Date: 20131220
  Transmission Date: 20140711
  Serious: Yes (Hospitalization)
  Sender: FDA-Public Use
  Company Number: NL-PFIZER INC-2013363167

PATIENT
  Age: 58 Year
  Sex: Female

DRUGS (6)
  1. CLINDAMYCIN HCL [Suspect]
     Indication: TONSILLITIS
     Dosage: 150 MG, UNK
     Dates: start: 20130605, end: 20130606
  2. ENALAPRIL [Concomitant]
     Dosage: 10 MG, 1X/DAY
     Dates: start: 2012
  3. THYRAX [Concomitant]
     Dosage: 0.15 MG, 1X/DAY
     Dates: start: 2012
  4. OMEPRAZOLE [Concomitant]
     Dosage: 20 MG, 1X/DAY
     Dates: start: 2012
  5. SERTRALINE [Concomitant]
     Dosage: 50 MG, 1X/DAY
     Dates: start: 2012
  6. TEMAZEPAM [Concomitant]
     Dosage: 10 MG, AS NEEDED
     Dates: start: 2012

REACTIONS (2)
  - Acute generalised exanthematous pustulosis [Recovered/Resolved]
  - Pyrexia [Recovered/Resolved]
